FAERS Safety Report 9392037 (Version 1)
Quarter: 2013Q3

REPORT INFORMATION
  Report Type: Spontaneous
  Country: US (occurrence: US)
  Receive Date: 20130709
  Receipt Date: 20130709
  Transmission Date: 20140515
  Serious: Yes (Other)
  Sender: FDA-Public Use
  Company Number: US-COVIDIEN/TYCO HEALTHCARE/MALLINCKRODT-T201303596

PATIENT
  Sex: Female
  Weight: 90.7 kg

DRUGS (9)
  1. ROXICODONE [Suspect]
     Indication: BREAKTHROUGH PAIN
     Dosage: 30 MG, Q 4 HRS PRN
     Route: 048
     Dates: end: 20130627
  2. OXYCONTIN [Concomitant]
     Indication: PAIN
     Dosage: UNK
  3. NEXIUM                             /01479302/ [Concomitant]
     Dosage: UNK
  4. CELEBREX [Concomitant]
     Dosage: UNK
  5. LISINOPRIL [Concomitant]
     Indication: BLOOD PRESSURE
     Dosage: UNK
  6. FUROSEMIDE [Concomitant]
     Indication: FLUID RETENTION
     Dosage: UNK
  7. NEURONTIN [Concomitant]
     Indication: NEUROPATHY PERIPHERAL
     Dosage: UNK
  8. THYROID THERAPY [Concomitant]
     Dosage: UNK
  9. DOCUSATE [Concomitant]
     Dosage: UNK

REACTIONS (5)
  - Large intestinal haemorrhage [Recovered/Resolved]
  - Dysgeusia [Recovered/Resolved]
  - Malaise [Recovered/Resolved]
  - Tremor [Recovered/Resolved]
  - Pain [Not Recovered/Not Resolved]
